FAERS Safety Report 4396602-1 (Version None)
Quarter: 2004Q3

REPORT INFORMATION
  Report Type: 
  Country: None (occurrence: None)
  Receive Date: 20040713
  Receipt Date: 20040713
  Transmission Date: 20050211
  Serious: Yes (Other)
  Sender: FDA-Public Use
  Company Number: None

PATIENT
  Sex: Male
  Weight: 72.5755 kg

DRUGS (1)
  1. LAMISIL [Suspect]
     Indication: ONYCHOMYCOSIS
     Dosage: 1 PER DAY 250 MG ORAL
     Route: 048
     Dates: start: 20040601, end: 20040708

REACTIONS (6)
  - ASTHENIA [None]
  - BLISTER [None]
  - DECREASED ACTIVITY [None]
  - FATIGUE [None]
  - PYREXIA [None]
  - RASH [None]
